FAERS Safety Report 14983100 (Version 1)
Quarter: 2018Q2

REPORT INFORMATION
  Report Type: Spontaneous
  Country: US (occurrence: US)
  Receive Date: 20180517
  Receipt Date: 20180517
  Transmission Date: 20180711
  Serious: Yes (Life-Threatening, Other)
  Sender: FDA-Public Use
  Company Number: None

PATIENT
  Age: 71 Year
  Sex: Male
  Weight: 90 kg

DRUGS (12)
  1. MEDICAL MARIJUANA [Concomitant]
     Active Substance: CANNABIS SATIVA SUBSP. INDICA TOP
  2. EZETIMIBE. [Concomitant]
     Active Substance: EZETIMIBE
  3. CENTRUM SILVER [Concomitant]
     Active Substance: MINERALS\VITAMINS
  4. COPAXONE [Suspect]
     Active Substance: GLATIRAMER ACETATE
     Indication: MULTIPLE SCLEROSIS
     Dosage: ?          QUANTITY:1 DF DOSAGE FORM;?
  5. OXYBUTYNIN TER [Concomitant]
  6. ATORVASTATIN [Concomitant]
     Active Substance: ATORVASTATIN
  7. CELECOXIB. [Concomitant]
     Active Substance: CELECOXIB
  8. NUCYNTA [Concomitant]
     Active Substance: TAPENTADOL HYDROCHLORIDE
  9. METOPROLOL SUCCINATE. [Concomitant]
     Active Substance: METOPROLOL SUCCINATE
  10. PANTAPRAZOR [Concomitant]
  11. SILDENAFIL CITRATE. [Concomitant]
     Active Substance: SILDENAFIL CITRATE
  12. ALIGN PROBIOTIC [Concomitant]

REACTIONS (10)
  - Chills [None]
  - Heart rate decreased [None]
  - Dizziness [None]
  - Nausea [None]
  - Syncope [None]
  - Wrong technique in product usage process [None]
  - Hyperhidrosis [None]
  - Loss of consciousness [None]
  - Vascular injury [None]
  - Injection site haemorrhage [None]

NARRATIVE: CASE EVENT DATE: 20180423
